FAERS Safety Report 5141636-2 (Version None)
Quarter: 2006Q4

REPORT INFORMATION
  Report Type: 
  Country: None (occurrence: None)
  Receive Date: 20061101
  Receipt Date: 20061027
  Transmission Date: 20070319
  Serious: Yes (Hospitalization)
  Sender: FDA-Public Use
  Company Number: FR-AVENTIS-200613820FR

PATIENT
  Age: 79 Year
  Sex: Female

DRUGS (12)
  1. LANTUS [Suspect]
     Indication: DIABETES MELLITUS
     Route: 058
  2. GLUCOPHAGE [Suspect]
     Indication: DIABETES MELLITUS
     Route: 058
  3. LASILIX                            /00032601/ [Concomitant]
     Route: 048
  4. LEVOTHYROXINE SODIUM [Concomitant]
  5. LEXOMIL [Concomitant]
     Route: 048
  6. MICARDIS HCT [Concomitant]
  7. BETASERC [Concomitant]
     Route: 048
  8. SEROPRAM [Concomitant]
     Route: 048
  9. CONTRAMAL [Concomitant]
     Route: 048
  10. PLAVIX [Concomitant]
     Route: 048
  11. STILNOX                            /00914901/ [Concomitant]
     Route: 048
  12. RISPERDAL [Concomitant]
     Route: 048

REACTIONS (2)
  - HYPOGLYCAEMIA [None]
  - OVERDOSE [None]
